FAERS Safety Report 6552247-6 (Version None)
Quarter: 2010Q1

REPORT INFORMATION
  Report Type: 
  Country: None (occurrence: None)
  Receive Date: 20100121
  Receipt Date: 20100115
  Transmission Date: 20100710
  Serious: Yes (Death, Hospitalization, Other)
  Sender: FDA-Public Use
  Company Number: 2010US000121

PATIENT
  Age: 61 Year
  Sex: Male
  Weight: 63 kg

DRUGS (11)
  1. PROGRAF [Suspect]
     Indication: LIVER TRANSPLANT
     Dosage: 1.5 MG, UID/QD
     Dates: start: 20071211, end: 20081201
  2. PROGRAF [Suspect]
     Indication: LIVER TRANSPLANT
     Dosage: 1.5 MG, UID/QD
     Dates: start: 20090701, end: 20100114
  3. CELLCEPT [Suspect]
     Indication: LIVER TRANSPLANT
     Dosage: 1000 MG, BID, ORAL
     Route: 048
     Dates: start: 20071211, end: 20081201
  4. CELLCEPT [Suspect]
     Indication: LIVER TRANSPLANT
     Dosage: 1000 MG, BID, ORAL
     Route: 048
     Dates: start: 20090701, end: 20100114
  5. RAPAMUNE [Suspect]
     Indication: LIVER TRANSPLANT
     Dates: start: 20081201, end: 20090701
  6. PREDNISONE [Suspect]
     Indication: LIVER TRANSPLANT
     Dates: start: 20081201, end: 20090701
  7. OXYCODONE HCL [Concomitant]
  8. SEROQUEL [Concomitant]
  9. SINEMET [Concomitant]
  10. TRAZODONE HCL [Concomitant]
  11. VACCINES [Concomitant]

REACTIONS (5)
  - ADVERSE EVENT [None]
  - BLOOD CREATININE INCREASED [None]
  - INFECTION [None]
  - PNEUMONIA [None]
  - SPINAL FUSION SURGERY [None]
